FAERS Safety Report 18712517 (Version 1)
Quarter: 2021Q1

REPORT INFORMATION
  Report Type: Spontaneous
  Country: US (occurrence: US)
  Receive Date: 20210107
  Receipt Date: 20210107
  Transmission Date: 20210419
  Serious: Yes (Other)
  Sender: FDA-Public Use
  Company Number: US-OXFORD PHARMACEUTICALS, LLC-2020OXF00158

PATIENT
  Sex: Female

DRUGS (2)
  1. LORTAB [Concomitant]
     Active Substance: ACETAMINOPHEN\HYDROCODONE BITARTRATE
  2. METHOCARBAMOL. [Suspect]
     Active Substance: METHOCARBAMOL
     Indication: MUSCLE STRAIN
     Dosage: UNK, AS NEEDED

REACTIONS (4)
  - Depressed mood [Unknown]
  - Allergic reaction to excipient [Unknown]
  - Urticaria [Unknown]
  - Intervertebral disc protrusion [Unknown]
